FAERS Safety Report 4802174-7 (Version None)
Quarter: 2005Q4

REPORT INFORMATION
  Report Type: 
  Country: None (occurrence: None)
  Receive Date: 20051012
  Receipt Date: 20050928
  Transmission Date: 20060501
  Serious: Yes (Hospitalization, Other)
  Sender: FDA-Public Use
  Company Number: 05-04-0611

PATIENT
  Age: 35 Year
  Sex: Female

DRUGS (4)
  1. CLOZAPINE [Suspect]
     Indication: SCHIZOAFFECTIVE DISORDER
     Dosage: 300MG QD, ORAL
     Route: 048
     Dates: start: 20050206, end: 20050220
  2. ZYPREXA [Concomitant]
  3. ZOLOFT [Concomitant]
  4. DEPAKOTE [Concomitant]

REACTIONS (13)
  - CARDIOMEGALY [None]
  - DEHYDRATION [None]
  - DELUSION [None]
  - DIARRHOEA [None]
  - EAR INFECTION [None]
  - ENTEROCOCCAL INFECTION [None]
  - EOSINOPHILIA [None]
  - LUNG DISORDER [None]
  - ORAL INTAKE REDUCED [None]
  - PERICARDIAL EFFUSION [None]
  - PULMONARY OEDEMA [None]
  - RESPIRATORY RATE INCREASED [None]
  - SCAR [None]
